FAERS Safety Report 13646540 (Version 1)
Quarter: 2017Q2

REPORT INFORMATION
  Report Type: Spontaneous
  Country: US (occurrence: US)
  Receive Date: 20170613
  Receipt Date: 20170613
  Transmission Date: 20170830
  Serious: No
  Sender: FDA-Public Use
  Company Number: US-PFIZER INC-2017252354

PATIENT
  Sex: Male

DRUGS (1)
  1. LYRICA [Suspect]
     Active Substance: PREGABALIN
     Indication: BRACHIAL PLEXUS INJURY
     Dosage: UNK

REACTIONS (1)
  - Drug ineffective for unapproved indication [Not Recovered/Not Resolved]
